FAERS Safety Report 10226027 (Version 4)
Quarter: 2015Q1

REPORT INFORMATION
  Report Type: Spontaneous
  Country: US (occurrence: US)
  Receive Date: 20140609
  Receipt Date: 20150316
  Transmission Date: 20150720
  Serious: No
  Sender: FDA-Public Use
  Company Number: US-ASTELLAS-2014US002662

PATIENT
  Age: 78 Year
  Sex: Male

DRUGS (1)
  1. XTANDI [Suspect]
     Active Substance: ENZALUTAMIDE
     Indication: PROSTATE CANCER
     Route: 048
     Dates: start: 20140204

REACTIONS (10)
  - Asthenia [Unknown]
  - Fatigue [Unknown]
  - Musculoskeletal pain [Unknown]
  - Fall [Unknown]
  - Flatulence [Unknown]
  - Skin odour abnormal [Unknown]
  - Peripheral swelling [Unknown]
  - Initial insomnia [Unknown]
  - Dizziness [Unknown]
  - Urine odour abnormal [Unknown]

NARRATIVE: CASE EVENT DATE: 2014
